FAERS Safety Report 4778893-8 (Version None)
Quarter: 2005Q3

REPORT INFORMATION
  Report Type: 
  Country: None (occurrence: None)
  Receive Date: 20050922
  Receipt Date: 20050913
  Transmission Date: 20060218
  Serious: Yes (Death, Hospitalization, Other)
  Sender: FDA-Public Use
  Company Number: 2001-06-0758

PATIENT
  Age: 79 Year
  Sex: Female
  Weight: 58.514 kg

DRUGS (4)
  1. TEMODAR [Suspect]
     Indication: MYELODYSPLASTIC SYNDROME
     Dosage: 315 MG QD ORAL
     Route: 048
     Dates: start: 20010516, end: 20010522
  2. ZITHROMAX [Concomitant]
  3. TYLENOL W/ CODEINE [Concomitant]
  4. MUSCLE RELAXANT (NOS) [Concomitant]

REACTIONS (20)
  - ACUTE RESPIRATORY DISTRESS SYNDROME [None]
  - ANIMAL SCRATCH [None]
  - CELLULITIS [None]
  - CONDITION AGGRAVATED [None]
  - CONSTIPATION [None]
  - ECCHYMOSIS [None]
  - FEBRILE NEUTROPENIA [None]
  - GENERAL PHYSICAL HEALTH DETERIORATION [None]
  - INFECTION [None]
  - PANCYTOPENIA [None]
  - PNEUMONIA [None]
  - PNEUMONIA ASPIRATION [None]
  - PRURITUS [None]
  - PULMONARY ALVEOLAR HAEMORRHAGE [None]
  - PULMONARY OEDEMA [None]
  - RESPIRATORY FAILURE [None]
  - SEPTIC SHOCK [None]
  - STENOTROPHOMONAS SEPSIS [None]
  - TONGUE HAEMATOMA [None]
  - VASCULITIC RASH [None]
